FAERS Safety Report 11106839 (Version 1)
Quarter: 2015Q2

REPORT INFORMATION
  Report Type: Spontaneous
  Country: TR (occurrence: None)
  Receive Date: 20150508
  Receipt Date: 20150508
  Transmission Date: 20150821
  Serious: Yes (Hospitalization, Other)
  Sender: FDA-Public Use
  Company Number: TR-ZYDUS-007859

PATIENT
  Sex: Female

DRUGS (1)
  1. HALOPERIDOL (HALOPERIDOL) (HALOPERIDOL) [Suspect]
     Active Substance: HALOPERIDOL
     Indication: PSYCHOTIC DISORDER
     Dosage: 20.00-MG-1.0DAYS

REACTIONS (3)
  - Dehydration [None]
  - Foetal exposure during pregnancy [None]
  - Nephrogenic diabetes insipidus [None]
